FAERS Safety Report 8281369-7 (Version None)
Quarter: 2012Q2

REPORT INFORMATION
  Report Type: 
  Country: None (occurrence: None)
  Receive Date: 20120413
  Receipt Date: 20120410
  Transmission Date: 20120825
  Serious: No
  Sender: FDA-Public Use
  Company Number: US-PFIZER INC-2012089281

PATIENT
  Sex: Female

DRUGS (2)
  1. LIPITOR [Concomitant]
     Dosage: UNK
  2. NEURONTIN [Suspect]

REACTIONS (1)
  - DRUG INEFFECTIVE [None]
